FAERS Safety Report 7942733-6 (Version None)
Quarter: 2011Q4

REPORT INFORMATION
  Report Type: 
  Country: None (occurrence: None)
  Receive Date: 20111128
  Receipt Date: 20111005
  Transmission Date: 20120403
  Serious: No
  Sender: FDA-Public Use
  Company Number: US-BAYER-2011-096199

PATIENT
  Age: 55 Year
  Sex: Female
  Weight: 90 kg

DRUGS (6)
  1. POTASSIUM ACETATE [Concomitant]
  2. THYROID MEDICINE [Concomitant]
  3. PLAQUENIL [Concomitant]
  4. ALEVE (CAPLET) [Suspect]
     Indication: ARTHRALGIA
     Dosage: 2 DF, QD
     Route: 048
     Dates: start: 20111004
  5. DIOVAN [Concomitant]
  6. ZOCOR [Concomitant]

REACTIONS (1)
  - ARTHRALGIA [None]
